FAERS Safety Report 5879395-8 (Version None)
Quarter: 2008Q3

REPORT INFORMATION
  Report Type: 
  Country: None (occurrence: None)
  Receive Date: 20080912
  Receipt Date: 20080908
  Transmission Date: 20090109
  Serious: Yes (Other)
  Sender: FDA-Public Use
  Company Number: B0532178A

PATIENT
  Age: 63 Year
  Sex: Female

DRUGS (5)
  1. SERETIDE [Suspect]
     Indication: ASTHMA
     Dosage: 1PUFF TWICE PER DAY
     Route: 055
  2. VENTOLIN [Suspect]
     Indication: ASTHMA
     Dosage: 100MCG AS REQUIRED
     Route: 055
  3. UNKNOWN [Concomitant]
     Route: 065
  4. MULTI-VITAMINS [Concomitant]
     Route: 065
  5. LOVAZA [Concomitant]
     Route: 065

REACTIONS (2)
  - COUGH [None]
  - LOWER RESPIRATORY TRACT INFECTION [None]
